FAERS Safety Report 10610806 (Version 1)
Quarter: 2014Q4

REPORT INFORMATION
  Report Type: Spontaneous
  Country: US (occurrence: US)
  Receive Date: 20141126
  Receipt Date: 20141126
  Transmission Date: 20150529
  Serious: No
  Sender: FDA-Public Use
  Company Number: US-MALLINCKRODT-T201401332

PATIENT

DRUGS (1)
  1. GABLOFEN [Suspect]
     Active Substance: BACLOFEN
     Indication: MUSCLE SPASTICITY
     Dosage: 607.5 MCG (4 MCG/HR BASAL RATE WITH 4 BOLUSES QD)
     Route: 037

REACTIONS (3)
  - Sedation [Unknown]
  - Disturbance in attention [Unknown]
  - Somnolence [Unknown]
